FAERS Safety Report 5530429-X (Version None)
Quarter: 2007Q4

REPORT INFORMATION
  Report Type: 
  Country: None (occurrence: None)
  Receive Date: 20071127
  Receipt Date: 20071127
  Transmission Date: 20080405
  Serious: No
  Sender: FDA-Public Use
  Company Number: None

PATIENT
  Age: 39 Year
  Sex: Male
  Weight: 98 kg

DRUGS (4)
  1. CUBICIN [Suspect]
     Dosage: 500 MG Q24H IV
     Route: 042
     Dates: start: 20071004
  2. BACTROBAN [Suspect]
     Indication: LOCAL ANTIBACTERIAL THERAPY
     Dosage: ONE APPLICATION BID NASAL
     Route: 045
     Dates: start: 20071004
  3. UNASYN [Concomitant]
  4. VANCOMYCIN [Concomitant]

REACTIONS (7)
  - CHEST PAIN [None]
  - DYSPHAGIA [None]
  - PALPITATIONS [None]
  - PERIORBITAL OEDEMA [None]
  - PRURITUS GENERALISED [None]
  - SWELLING [None]
  - SWOLLEN TONGUE [None]
